FAERS Safety Report 7635107 (Version 5)
Quarter: 2014Q4

REPORT INFORMATION
  Report Type: Spontaneous
  Country: JP (occurrence: JP)
  Receive Date: 20101020
  Receipt Date: 20141204
  Transmission Date: 20150529
  Serious: Yes (Life-Threatening)
  Sender: FDA-Public Use
  Company Number: JP-BAYER-201015170BYL

PATIENT
  Age: 73 Year
  Sex: Female
  Weight: 63 kg

DRUGS (23)
  1. SODIUM CHLORIDE. [Concomitant]
     Active Substance: SODIUM CHLORIDE
     Dosage: 10 ML (DAILY DOSE), , IV DRIP
     Route: 041
     Dates: start: 20101018, end: 20101020
  2. AMARYL [Concomitant]
     Active Substance: GLIMEPIRIDE
     Route: 048
  3. HIRUDOID [Concomitant]
     Active Substance: GLYCOSAMINOGLYCANS
     Route: 061
  4. SULPERAZON [Concomitant]
     Active Substance: CEFOPERAZONE SODIUM\SULBACTAM SODIUM
     Dosage: EVENING
     Route: 041
     Dates: start: 20101014, end: 20101014
  5. NEUART [Concomitant]
     Dosage: 1500 IU (DAILY DOSE), , IV DRIP
     Route: 041
     Dates: start: 20101016, end: 20101020
  6. SEISHOKU [Concomitant]
     Active Substance: SODIUM CHLORIDE
     Dosage: EVENING
     Route: 041
     Dates: start: 20101014, end: 20101014
  7. SUMIFERON [Concomitant]
     Active Substance: INTERFERON ALFA-N1
     Dosage: UNK, OW
     Route: 065
     Dates: start: 20080407, end: 20100826
  8. GLYCERIN. [Concomitant]
     Active Substance: GLYCERIN
     Indication: DRUG TOXICITY PROPHYLAXIS
     Route: 062
  9. HIRUDOID [Concomitant]
     Active Substance: GLYCOSAMINOGLYCANS
     Route: 061
  10. SUMIFERON [Concomitant]
     Active Substance: INTERFERON ALFA-N1
     Dosage: UNK, TIW
     Route: 065
  11. TAKEPRON [Concomitant]
     Active Substance: LANSOPRAZOLE
     Dosage: 15 MG, QD
     Route: 048
  12. SOLYUGEN G TEISAN [Concomitant]
     Dosage: 500 ML (DAILY DOSE), , IV DRIP
     Route: 041
     Dates: start: 20101013, end: 20101020
  13. GLUCOSE [Concomitant]
     Active Substance: DEXTROSE
     Dosage: 1000 ML (DAILY DOSE), , IV DRIP
     Route: 041
     Dates: start: 20101015, end: 20101020
  14. NEXAVAR [Suspect]
     Active Substance: SORAFENIB
     Indication: RENAL CELL CARCINOMA
     Dosage: 400 MG, BID
     Route: 048
     Dates: start: 20100913
  15. EURODIN [Concomitant]
     Active Substance: ESTAZOLAM
     Indication: INSOMNIA
     Route: 048
  16. KN SOL. 3B [Concomitant]
     Dosage: 500 ML (DAILY DOSE), , IV DRIP
     Route: 041
     Dates: start: 20101013, end: 20101013
  17. TAKEPRON [Concomitant]
     Active Substance: LANSOPRAZOLE
     Dosage: 30 MG (DAILY DOSE), IV DRIP
     Route: 041
     Dates: start: 20101016, end: 20101020
  18. KN SOL. 3B [Concomitant]
     Dosage: 1000 ML (DAILY DOSE), , IV DRIP
     Route: 041
     Dates: start: 20101014, end: 20101020
  19. VIT B1,IN COMBINATION WITH VITAMIN B6 AND B12 [Concomitant]
     Dosage: 10 ML (DAILY DOSE), , IV DRIP
     Route: 041
     Dates: start: 20101019, end: 20101020
  20. SEISHOKU [Concomitant]
     Active Substance: SODIUM CHLORIDE
     Dosage: MORNING, EVENING
     Route: 041
     Dates: start: 20101015, end: 20101015
  21. NEXAVAR [Suspect]
     Active Substance: SORAFENIB
     Indication: RENAL CELL CARCINOMA
     Dosage: 400 MG, QD
     Route: 048
     Dates: start: 20101008, end: 20101012
  22. SULPERAZON [Concomitant]
     Active Substance: CEFOPERAZONE SODIUM\SULBACTAM SODIUM
     Dosage: MORNING, EVENING
     Route: 041
     Dates: start: 20101015, end: 20101020
  23. SEISHOKU [Concomitant]
     Active Substance: SODIUM CHLORIDE
     Dosage: 250 ML (DAILY DOSE), , IV DRIP
     Route: 041
     Dates: start: 20101016, end: 20101020

REACTIONS (4)
  - Drug-induced liver injury [Recovering/Resolving]
  - Rash [Recovered/Resolved]
  - Disseminated intravascular coagulation [Not Recovered/Not Resolved]
  - Alopecia [Recovering/Resolving]

NARRATIVE: CASE EVENT DATE: 201010
